FAERS Safety Report 8403172-7 (Version None)
Quarter: 2012Q2

REPORT INFORMATION
  Report Type: 
  Country: None (occurrence: None)
  Receive Date: 20120323
  Receipt Date: 20111007
  Transmission Date: 20120825
  Serious: Yes (Disabling, Other)
  Sender: FDA-Public Use
  Company Number: 163-21880-11040975

PATIENT
  Age: 74 Year
  Sex: Male
  Weight: 77.1115 kg

DRUGS (5)
  1. REVLIMID [Suspect]
     Indication: MULTIPLE MYELOMA
     Dosage: 25 MG, DAILY X 21 DAYS, PO
     Route: 048
     Dates: start: 20110317, end: 20110603
  2. DEXAMETHASONE [Concomitant]
  3. AMLODIPINE [Concomitant]
  4. FLOMAX [Concomitant]
  5. OMEPRAZOLE [Concomitant]

REACTIONS (3)
  - MALAISE [None]
  - MUSCLE SPASMS [None]
  - ASTHENIA [None]
